FAERS Safety Report 10492389 (Version 6)
Quarter: 2016Q3

REPORT INFORMATION
  Report Type: Spontaneous
  Country: US (occurrence: US)
  Receive Date: 20141002
  Receipt Date: 20160818
  Transmission Date: 20161109
  Serious: Yes (Hospitalization, Other)
  Sender: FDA-Public Use
  Company Number: US-GLAXOSMITHKLINE-A1070346A

PATIENT
  Age: 52 Year
  Sex: Male

DRUGS (3)
  1. VENTOLIN [Suspect]
     Active Substance: ALBUTEROL SULFATE
     Indication: PRODUCT USED FOR UNKNOWN INDICATION
     Route: 055
     Dates: start: 20080918
  2. VENTOLIN HFA [Suspect]
     Active Substance: ALBUTEROL SULFATE
     Indication: PRODUCT USED FOR UNKNOWN INDICATION
  3. ADVAIR HFA [Suspect]
     Active Substance: FLUTICASONE PROPIONATE\SALMETEROL XINAFOATE
     Indication: ASTHMA
     Dosage: 500/50 MCGPREVIOUSLY USED 100/50 MCG AND 250/50 MCG
     Route: 065
     Dates: start: 20121012

REACTIONS (6)
  - Drug dose omission [Unknown]
  - Emergency care [Unknown]
  - Surgery [Unknown]
  - Intentional product use issue [Unknown]
  - Hospitalisation [Unknown]
  - Movement disorder [Unknown]

NARRATIVE: CASE EVENT DATE: 201608
